FAERS Safety Report 6685840-0 (Version None)
Quarter: 2010Q2

REPORT INFORMATION
  Report Type: 
  Country: None (occurrence: None)
  Receive Date: 20100415
  Receipt Date: 20100415
  Transmission Date: 20101027
  Serious: Yes (Hospitalization)
  Sender: FDA-Public Use
  Company Number: None

PATIENT
  Sex: Female
  Weight: 72 kg

DRUGS (6)
  1. CYCLOPHOSPHAMIDE [Suspect]
     Dosage: 1305 MG
  2. DAUNORUBICIN HYDROCHLORIDE [Suspect]
     Dosage: 68 MG
  3. ETOPOSIDE [Suspect]
     Dosage: 348 MG
  4. PREDNISONE [Suspect]
     Dosage: 500 MG
  5. RITUXIMAB (MOAB C2B8 ANTI CD20 CHIMERIC) [Suspect]
     Dosage: 653 MG
  6. VINCRISTINE SULFATE [Suspect]
     Dosage: 2.8 MG

REACTIONS (9)
  - ABDOMINAL PAIN [None]
  - ASCITES [None]
  - CONSTIPATION [None]
  - GASTROINTESTINAL OEDEMA [None]
  - HYPERGLYCAEMIA [None]
  - HYPOALBUMINAEMIA [None]
  - HYPOCALCAEMIA [None]
  - LYMPHADENOPATHY [None]
  - TUMOUR LYSIS SYNDROME [None]
